FAERS Safety Report 17201296 (Version 1)
Quarter: 2020Q1

REPORT INFORMATION
  Report Type: Spontaneous
  Country: AF (occurrence: AF)
  Receive Date: 20191224
  Receipt Date: 20191224
  Transmission Date: 20200409
  Serious: Yes (Death)
  Sender: FDA-Public Use
  Company Number: None

PATIENT
  Age: 56 Year
  Sex: Female

DRUGS (11)
  1. ROZLYTREK [Suspect]
     Active Substance: ENTRECTINIB
     Indication: LUNG NEOPLASM MALIGNANT
     Route: 048
     Dates: start: 20191212, end: 20191212
  2. ENOXAPARIN INJ 60/0.6ML [Concomitant]
     Dates: start: 20191031
  3. SMZ/TMP DS 800-160 [Concomitant]
     Active Substance: SULFAMETHOXAZOLE\TRIMETHOPRIM
     Dates: start: 20190815
  4. DILTIAZEM ER 240MG [Concomitant]
     Active Substance: DILTIAZEM HYDROCHLORIDE
     Dates: start: 20190815
  5. FAMOTIDINE 20MG [Concomitant]
     Active Substance: FAMOTIDINE
     Dates: start: 20191210
  6. PREDINISONE 10MG [Concomitant]
     Dates: start: 20191028
  7. ASPERCREME PAD LID 4% [Concomitant]
     Dates: start: 20191211
  8. IPRATROPIUM SOL 0.02% INH [Concomitant]
     Dates: start: 20191210
  9. ZOLPIDEM [Concomitant]
     Active Substance: ZOLPIDEM TARTRATE
     Dates: start: 20191210
  10. METOPROL SUC ER 50MG [Concomitant]
     Dates: start: 20191210
  11. CLONAZEPAM 0.5MG [Concomitant]
     Active Substance: CLONAZEPAM
     Dates: start: 20191210

REACTIONS (1)
  - Death [None]

NARRATIVE: CASE EVENT DATE: 20191223
